FAERS Safety Report 8170754-X (Version None)
Quarter: 2012Q1

REPORT INFORMATION
  Report Type: 
  Country: None (occurrence: None)
  Receive Date: 20120228
  Receipt Date: 20120222
  Transmission Date: 20120608
  Serious: Yes (Other)
  Sender: FDA-Public Use
  Company Number: MX-SANOFI-AVENTIS-2012SA004667

PATIENT
  Age: 75 Year
  Sex: Female
  Weight: 42 kg

DRUGS (8)
  1. PLAVIX [Suspect]
     Indication: THROMBOSIS PROPHYLAXIS
     Dosage: 1 TABLET / 24 HOURS .
     Route: 048
     Dates: start: 20060101, end: 20111001
  2. PLAVIX [Suspect]
     Dosage: 1/2 TABLET / 48 HOURS .
     Route: 048
     Dates: start: 20120208
  3. PLAVIX [Suspect]
     Dosage: 1/2 TABLET / 48 HOURS .
     Route: 048
     Dates: start: 20120208
  4. OMEPRAZOLE [Concomitant]
     Route: 048
  5. VONTROL [Concomitant]
     Indication: DIZZINESS
     Route: 048
  6. PLAVIX [Suspect]
     Dosage: 1 TABLET / 24 HOURS .
     Route: 048
     Dates: start: 20060101, end: 20111001
  7. OMEPRAZOLE [Concomitant]
     Indication: GASTRITIS
     Route: 048
  8. INDOMETHACIN [Concomitant]
     Indication: RHEUMATOID ARTHRITIS
     Dosage: .25 MG OF INDOMETHACIN + .75 MG OF BETAMETHASONE + 215 MG OF METHOCARBAMOL
     Route: 048

REACTIONS (5)
  - HAEMATOMA [None]
  - FALL [None]
  - WEIGHT DECREASED [None]
  - DECREASED APPETITE [None]
  - DRUG ADMINISTRATION ERROR [None]
